FAERS Safety Report 16827394 (Version 1)
Quarter: 2019Q3

REPORT INFORMATION
  Report Type: Spontaneous
  Country: FR (occurrence: FR)
  Receive Date: 20190919
  Receipt Date: 20190919
  Transmission Date: 20191005
  Serious: Yes (Life-Threatening, Hospitalization, Other)
  Sender: FDA-Public Use
  Company Number: FR-MYLANLABS-2019M1088129

PATIENT
  Age: 70 Year
  Sex: Male

DRUGS (7)
  1. CETUXIMAB. [Concomitant]
     Active Substance: CETUXIMAB
     Dosage: SALVAGE THERAPY
     Route: 065
     Dates: start: 201406
  2. CARBOPLATIN. [Concomitant]
     Active Substance: CARBOPLATIN
     Dosage: SALVAGE THERAPY
     Route: 065
     Dates: start: 201406
  3. DOCETAXEL. [Concomitant]
     Active Substance: DOCETAXEL
     Indication: HEAD AND NECK CANCER METASTATIC
     Dosage: SALVAGE THERAPY
     Route: 065
     Dates: start: 201406
  4. CETUXIMAB. [Concomitant]
     Active Substance: CETUXIMAB
     Indication: HEAD AND NECK CANCER METASTATIC
     Dosage: UNK
     Route: 065
  5. ZOLEDRONIC ACID [Suspect]
     Active Substance: ZOLEDRONIC ACID
     Indication: HEAD AND NECK CANCER METASTATIC
     Route: 042
  6. CAPECITABINE. [Concomitant]
     Active Substance: CAPECITABINE
     Indication: HEAD AND NECK CANCER METASTATIC
     Route: 065
  7. CARBOPLATIN. [Concomitant]
     Active Substance: CARBOPLATIN
     Indication: HEAD AND NECK CANCER METASTATIC
     Dosage: UNK
     Route: 065

REACTIONS (3)
  - Osteonecrosis of jaw [Recovering/Resolving]
  - Mouth haemorrhage [Recovered/Resolved]
  - Hypovolaemic shock [Recovering/Resolving]
